FAERS Safety Report 12491870 (Version 1)
Quarter: 2016Q2

REPORT INFORMATION
  Report Type: Spontaneous
  Country: US (occurrence: None)
  Receive Date: 20160622
  Receipt Date: 20160622
  Transmission Date: 20160815
  Serious: Yes (Life-Threatening, Hospitalization, Disabling, Other)
  Sender: FDA-Public Use
  Company Number: None

PATIENT
  Age: 56 Year
  Weight: 102.06 kg

DRUGS (3)
  1. CLONOPIN [Concomitant]
     Active Substance: CLONAZEPAM
  2. DEPAKOTE [Suspect]
     Active Substance: DIVALPROEX SODIUM
     Indication: SEIZURE
     Route: 048
     Dates: start: 20150208, end: 20160523
  3. MULTI-VITAMINS (CALCIUM PANTOTHENATE, FOLIC ACID, VITAMINS NOS) [Concomitant]
     Active Substance: VITAMINS

REACTIONS (14)
  - Stress [None]
  - Cognitive disorder [None]
  - Memory impairment [None]
  - Unevaluable event [None]
  - Colon neoplasm [None]
  - Liver disorder [None]
  - Anxiety [None]
  - Phobia [None]
  - Gallbladder disorder [None]
  - Pancreatic neoplasm [None]
  - Product quality issue [None]
  - Gastrointestinal disorder [None]
  - Bladder disorder [None]
  - Eating disorder [None]

NARRATIVE: CASE EVENT DATE: 20150415
